FAERS Safety Report 18934793 (Version 2)
Quarter: 2021Q1

REPORT INFORMATION
  Report Type: Spontaneous
  Country: US (occurrence: US)
  Receive Date: 20210224
  Receipt Date: 20210331
  Transmission Date: 20210420
  Serious: Yes (Other)
  Sender: FDA-Public Use
  Company Number: US-GLAXOSMITHKLINE-US2021GSK051351

PATIENT
  Sex: Male

DRUGS (7)
  1. ZANTAC [Suspect]
     Active Substance: RANITIDINE HYDROCHLORIDE
     Indication: MULTIPLE ALLERGIES
     Dosage: 300 MG, QD
     Route: 065
     Dates: start: 200601, end: 201401
  2. RANITIDINE. [Suspect]
     Active Substance: RANITIDINE
     Indication: MULTIPLE ALLERGIES
     Dosage: 300 MG, QD
     Route: 065
     Dates: start: 200601, end: 201401
  3. RANITIDINE. [Suspect]
     Active Substance: RANITIDINE
     Indication: MULTIPLE ALLERGIES
     Dosage: 300 MG, QD
     Route: 065
     Dates: start: 200601, end: 201401
  4. RANITIDINE HYDROCHLORIDE. [Suspect]
     Active Substance: RANITIDINE HYDROCHLORIDE
     Indication: MULTIPLE ALLERGIES
     Dosage: 300 MG, QD
     Route: 065
     Dates: start: 200601, end: 201401
  5. ZANTAC [Suspect]
     Active Substance: RANITIDINE HYDROCHLORIDE
     Indication: MULTIPLE ALLERGIES
     Dosage: 300 MG, QD
     Route: 065
     Dates: start: 200601, end: 201401
  6. RANITIDINE CAPSULE [Suspect]
     Active Substance: RANITIDINE
     Indication: MULTIPLE ALLERGIES
     Dosage: 300 MG, QD
     Route: 065
     Dates: start: 200601, end: 201401
  7. ZANTAC [Suspect]
     Active Substance: RANITIDINE HYDROCHLORIDE
     Indication: MULTIPLE ALLERGIES
     Dosage: 300 MG, QD
     Route: 065
     Dates: start: 200601, end: 201401

REACTIONS (2)
  - Colorectal cancer [Unknown]
  - Prostate cancer [Unknown]
